FAERS Safety Report 7320102-X (Version None)
Quarter: 2011Q1

REPORT INFORMATION
  Report Type: 
  Country: None (occurrence: None)
  Receive Date: 20110214
  Receipt Date: 20110208
  Transmission Date: 20110831
  Serious: Yes (Hospitalization, Other)
  Sender: FDA-Public Use
  Company Number: 2010SP009716

PATIENT
  Age: 30 Year
  Sex: Female
  Weight: 70.7611 kg

DRUGS (7)
  1. MEDROXYPROGESTERONE [Suspect]
     Indication: CONTRACEPTION
     Dates: start: 20080208
  2. HYDROCODONE BITARTRATE + ACETAMINOPHEN [Concomitant]
  3. CEPHALEXIN [Concomitant]
  4. SYNTHROID [Concomitant]
  5. TOBRADEX [Concomitant]
  6. NUVARING [Suspect]
     Indication: CONTRACEPTION
     Dosage: VAG
     Route: 067
     Dates: start: 20071203, end: 20080208
  7. NUVARING [Suspect]
     Indication: VAGINAL HAEMORRHAGE
     Dosage: VAG
     Route: 067
     Dates: start: 20071203, end: 20080208

REACTIONS (14)
  - MENORRHAGIA [None]
  - INTERVERTEBRAL DISC DEGENERATION [None]
  - DISEASE PROGRESSION [None]
  - HEAD INJURY [None]
  - DEPRESSION [None]
  - OVARIAN CYST [None]
  - HYPOTHYROIDISM [None]
  - COGNITIVE DISORDER [None]
  - EMOTIONAL DISORDER [None]
  - CHEST PAIN [None]
  - DYSPNOEA [None]
  - FALL [None]
  - PULMONARY EMBOLISM [None]
  - THROMBOSIS [None]
